FAERS Safety Report 25656853 (Version 1)
Quarter: 2025Q3

REPORT INFORMATION
  Report Type: Report from Study
  Country: US (occurrence: US)
  Receive Date: 20250807
  Receipt Date: 20250807
  Transmission Date: 20251021
  Serious: Yes (Other)
  Sender: BAUSCH AND LOMB
  Company Number: US-BAUSCHBL-2025BNL013747

PATIENT
  Age: 66 Year
  Sex: Female

DRUGS (1)
  1. XIIDRA [Suspect]
     Active Substance: LIFITEGRAST
     Indication: Product used for unknown indication
     Dosage: INSTILL 1 DROP INTO BOTH EYES TWICE A DAY APPROXIMATELY 12 HOURS APART
     Route: 047
     Dates: start: 20250804, end: 20250804

REACTIONS (2)
  - Blindness transient [Unknown]
  - Eye irritation [Unknown]

NARRATIVE: CASE EVENT DATE: 20250804
